FAERS Safety Report 8015403-6 (Version None)
Quarter: 2011Q4

REPORT INFORMATION
  Report Type: 
  Country: None (occurrence: None)
  Receive Date: 20111230
  Receipt Date: 20111220
  Transmission Date: 20120403
  Serious: Yes (Other)
  Sender: FDA-Public Use
  Company Number: US-AMGEN-USASP2011067711

PATIENT
  Sex: Female

DRUGS (15)
  1. EPOGEN [Suspect]
     Indication: RENAL FAILURE CHRONIC
     Dosage: 3000 IU, 3 TIMES/WK
     Dates: start: 20110701, end: 20110101
  2. EPOGEN [Suspect]
     Dosage: 11000 IU, 3 TIMES/WK
     Dates: start: 20110101
  3. COREG [Concomitant]
  4. EPOGEN [Suspect]
     Dosage: 5000 IU, 3 TIMES/WK
     Dates: start: 20110101, end: 20110101
  5. WELLBUTRIN [Concomitant]
  6. VENOFER [Concomitant]
  7. ZEMPLAR [Concomitant]
  8. EPOGEN [Suspect]
     Dosage: 8000 IU, 3 TIMES/WK
     Dates: start: 20110101, end: 20110101
  9. FOLIC ACID [Concomitant]
  10. VITAMIN B COMPLEX CAP [Concomitant]
  11. XANAX [Concomitant]
  12. ARANESP [Suspect]
     Indication: RENAL FAILURE CHRONIC
     Dosage: UNK
     Dates: start: 20090101, end: 20100101
  13. SEROQUEL [Concomitant]
  14. DIPHENOXYLATE HCL AND ATROPINE SULFATE [Concomitant]
  15. RENAGEL [Concomitant]

REACTIONS (4)
  - DYSPNOEA [None]
  - HAEMOGLOBIN DECREASED [None]
  - MOBILITY DECREASED [None]
  - DRUG INEFFECTIVE [None]
